FAERS Safety Report 20389968 (Version 1)
Quarter: 2022Q1

REPORT INFORMATION
  Report Type: Spontaneous
  Country: US (occurrence: US)
  Receive Date: 20220128
  Receipt Date: 20220128
  Transmission Date: 20220423
  Serious: Yes (Other)
  Sender: FDA-Public Use
  Company Number: US-SANOFI-00938648

PATIENT

DRUGS (2)
  1. PRALUENT [Suspect]
     Active Substance: ALIROCUMAB
     Indication: Product used for unknown indication
  2. DUPIXENT [Suspect]
     Active Substance: DUPILUMAB
     Indication: Dermatitis atopic
     Dosage: UNK, QOW

REACTIONS (7)
  - Hepatitis [Unknown]
  - Muscle rupture [Unknown]
  - Liver disorder [Unknown]
  - Eczema [Unknown]
  - Injection site pain [Unknown]
  - Stent placement [Unknown]
  - Drug ineffective [Unknown]
